FAERS Safety Report 7683597-8 (Version None)
Quarter: 2011Q3

REPORT INFORMATION
  Report Type: 
  Country: None (occurrence: None)
  Receive Date: 20110815
  Receipt Date: 20110805
  Transmission Date: 20111222
  Serious: Yes (Hospitalization, Disabling, Other)
  Sender: FDA-Public Use
  Company Number: IN-ASTRAZENECA-2011SE41332

PATIENT
  Age: 69 Year
  Sex: Female

DRUGS (8)
  1. VANCOMYCIN [Concomitant]
     Indication: SEPSIS
     Route: 042
     Dates: start: 20110703, end: 20110704
  2. ENCLEX [Concomitant]
     Route: 058
     Dates: start: 20110704, end: 20110706
  3. AMIKACIN [Concomitant]
     Route: 042
     Dates: start: 20110707, end: 20110709
  4. LEVETIRACETAM [Concomitant]
     Route: 042
     Dates: start: 20110703, end: 20110705
  5. CEFTRIAXONE [Concomitant]
     Indication: SEPSIS
     Route: 042
     Dates: start: 20110703, end: 20110704
  6. DOXYCYCLINE [Concomitant]
     Route: 048
     Dates: start: 20110706, end: 20110709
  7. MEROPENEM [Suspect]
     Indication: SEPSIS
     Route: 042
     Dates: start: 20110704, end: 20110707
  8. PANTOCID [Concomitant]
     Route: 042
     Dates: start: 20110703, end: 20110707

REACTIONS (3)
  - THROMBOCYTOPENIA [None]
  - SUBARACHNOID HAEMORRHAGE [None]
  - LEUKOPENIA [None]
